FAERS Safety Report 18559920 (Version 2)
Quarter: 2021Q1

REPORT INFORMATION
  Report Type: Report from Study
  Country: US (occurrence: US)
  Receive Date: 20201130
  Receipt Date: 20210125
  Transmission Date: 20210419
  Serious: Yes (Hospitalization, Other)
  Sender: FDA-Public Use
  Company Number: US-TAKEDA-2020TUS052486

PATIENT
  Age: 65 Year
  Sex: Male

DRUGS (1)
  1. GAMMAGARD LIQUID [Suspect]
     Active Substance: HUMAN IMMUNOGLOBULIN G
     Indication: IMMUNODEFICIENCY COMMON VARIABLE
     Dosage: 10 GRAM
     Route: 058

REACTIONS (5)
  - Tooth infection [Unknown]
  - Myocardial infarction [Unknown]
  - Sinusitis [Unknown]
  - Delusion [Unknown]
  - Anaemia [Unknown]

NARRATIVE: CASE EVENT DATE: 202010
